FAERS Safety Report 4659071-X (Version None)
Quarter: 2005Q2

REPORT INFORMATION
  Report Type: 
  Country: None (occurrence: None)
  Receive Date: 20050509
  Receipt Date: 20050421
  Transmission Date: 20051028
  Serious: Yes (Hospitalization)
  Sender: FDA-Public Use
  Company Number: 2005AP02414

PATIENT
  Age: 63 Year
  Sex: Female

DRUGS (8)
  1. SEROQUEL [Suspect]
     Indication: SCHIZOPHRENIA
     Dosage: 75 MG DAILY PO
     Route: 048
     Dates: start: 20050125
  2. SEROQUEL [Suspect]
     Indication: SCHIZOPHRENIA
     Dosage: 400 MG DAILY PO
     Route: 048
     Dates: end: 20050311
  3. SERENACE [Concomitant]
  4. AKINETON [Concomitant]
  5. LEVOTOMIN [Concomitant]
  6. HALCION [Concomitant]
  7. LAXOBERON [Concomitant]
  8. DIOVAN [Concomitant]

REACTIONS (1)
  - WHITE BLOOD CELL COUNT DECREASED [None]
